FAERS Safety Report 6062835-1 (Version None)
Quarter: 2009Q1

REPORT INFORMATION
  Report Type: 
  Country: None (occurrence: None)
  Receive Date: 20090129
  Receipt Date: 20090116
  Transmission Date: 20090719
  Serious: Yes (Hospitalization)
  Sender: FDA-Public Use
  Company Number: 2009AL000372

PATIENT
  Age: 87 Year
  Sex: Female

DRUGS (12)
  1. TRAMADOL HYDROCHLORIDE [Suspect]
     Indication: ANALGESIA
     Dosage: 100 MG;QD
     Dates: start: 20080215
  2. ENOXAPARIN [Concomitant]
  3. NITROGLYCERIN [Concomitant]
  4. CO-DYDRAMOL [Concomitant]
  5. GAVISCON [Concomitant]
  6. OROMORPH [Concomitant]
  7. PARACETAMOL [Concomitant]
  8. NULYTELY [Concomitant]
  9. ADCAL-D3 [Concomitant]
  10. ALENDRONIC ACID [Concomitant]
  11. WARFARIN SODIUM [Concomitant]
  12. GABAPENTIN [Concomitant]

REACTIONS (6)
  - COGNITIVE DISORDER [None]
  - CONFUSIONAL STATE [None]
  - MOBILITY DECREASED [None]
  - OSTEOPOROSIS [None]
  - RADICULITIS [None]
  - SPINAL COMPRESSION FRACTURE [None]
